FAERS Safety Report 8665849 (Version 2)
Quarter: 2013Q2

REPORT INFORMATION
  Report Type: Report from Study
  Country: US (occurrence: US)
  Receive Date: 20120716
  Receipt Date: 20130611
  Transmission Date: 20140414
  Serious: Yes (Hospitalization)
  Sender: FDA-Public Use
  Company Number: US-UCBSA-061258

PATIENT
  Age: 43 Year
  Sex: Male
  Weight: 88.6 kg

DRUGS (1)
  1. CERTOLIZUMAB PEGOL [Suspect]
     Indication: SPONDYLITIS
     Route: 058

REACTIONS (2)
  - Diverticulitis [Recovered/Resolved]
  - Colitis [Recovered/Resolved with Sequelae]
